FAERS Safety Report 9753048 (Version 2)
Quarter: 2014Q1

REPORT INFORMATION
  Report Type: Spontaneous
  Country: IT (occurrence: IT)
  Receive Date: 20131213
  Receipt Date: 20140214
  Transmission Date: 20141002
  Serious: Yes (Other)
  Sender: FDA-Public Use
  Company Number: IT-PFIZER INC-2013353228

PATIENT
  Age: 69 Year
  Sex: Male

DRUGS (4)
  1. FARMORUBICINA [Suspect]
     Indication: PANCREATIC CARCINOMA
     Dosage: 50 MG, CYCLIC
     Route: 042
     Dates: start: 20130805, end: 20131115
  2. ZANTAC [Concomitant]
     Dosage: 50 MG, UNK
     Route: 042
     Dates: start: 20130805, end: 20131115
  3. DESAMETASONE FOSFATO HOSPIRA [Concomitant]
     Dosage: 8 MG, UNK
     Route: 042
     Dates: start: 20130805, end: 20131115
  4. GRANISETRON KABI [Concomitant]
     Dosage: 3 MG, UNK
     Route: 042
     Dates: start: 20130805, end: 20131115

REACTIONS (3)
  - Ventricular hypokinesia [Unknown]
  - Systolic dysfunction [Unknown]
  - Ejection fraction decreased [Unknown]
